FAERS Safety Report 19219317 (Version 1)
Quarter: 2021Q2

REPORT INFORMATION
  Report Type: Spontaneous
  Country: US (occurrence: US)
  Receive Date: 20210506
  Receipt Date: 20210506
  Transmission Date: 20210717
  Serious: No
  Sender: FDA-Public Use
  Company Number: US-ROCHE-2619019

PATIENT
  Sex: Male

DRUGS (1)
  1. ESBRIET [Suspect]
     Active Substance: PIRFENIDONE
     Indication: PRODUCT USED FOR UNKNOWN INDICATION
     Dosage: 1 PILL 3 X A DAY FOR 1 WEEK; THEN 2 PILLS 3 X A DAY FOR 1 WEEK; TO THE MAX DOSE OF 3 PILLS 3 X A DAY
     Route: 065

REACTIONS (4)
  - Dizziness [Unknown]
  - Abdominal discomfort [Unknown]
  - Vomiting [Unknown]
  - Feeling abnormal [Unknown]
